FAERS Safety Report 16945359 (Version 1)
Quarter: 2019Q4

REPORT INFORMATION
  Report Type: Spontaneous
  Country: US (occurrence: US)
  Receive Date: 20191022
  Receipt Date: 20191022
  Transmission Date: 20200122
  Serious: No
  Sender: FDA-Public Use
  Company Number: US-009507513-1910USA010730

PATIENT
  Age: 75 Year
  Sex: Female

DRUGS (1)
  1. KEYTRUDA [Suspect]
     Active Substance: PEMBROLIZUMAB
     Indication: CENTRAL NERVOUS SYSTEM MELANOMA
     Dosage: 2 MILLIGRAM/KILOGRAM, Q3W
     Route: 042

REACTIONS (3)
  - Fatigue [Unknown]
  - Abdominal pain [Unknown]
  - Diarrhoea [Unknown]
